FAERS Safety Report 9383985 (Version 1)
Quarter: 2013Q3

REPORT INFORMATION
  Report Type: Report from Study
  Country: JP (occurrence: JP)
  Receive Date: 20130705
  Receipt Date: 20130705
  Transmission Date: 20140515
  Serious: No
  Sender: FDA-Public Use
  Company Number: JP-JNJFOC-20130612482

PATIENT
  Age: 56 Year
  Sex: Female
  Weight: 45 kg

DRUGS (64)
  1. CELESTAMINE ( BETAMETHASONE-D-CHLORPHENIRAMINE MALEATE) [Concomitant]
     Indication: PAIN
     Route: 048
     Dates: start: 20110325, end: 20110414
  2. CELESTAMINE ( BETAMETHASONE-D-CHLORPHENIRAMINE MALEATE) [Concomitant]
     Indication: PAIN
     Route: 048
     Dates: start: 20110315, end: 20110505
  3. NON-PYRINE COLD PREPARATION [Concomitant]
     Indication: PAIN
     Route: 048
     Dates: end: 20101226
  4. DUROTEP MT [Suspect]
     Indication: PAIN
     Route: 062
     Dates: start: 20111031, end: 20111106
  5. DUROTEP MT [Suspect]
     Indication: PAIN
     Route: 062
     Dates: start: 20111107
  6. DUROTEP MT [Suspect]
     Indication: PAIN
     Route: 062
     Dates: start: 20111024, end: 20111030
  7. DUROTEP MT [Suspect]
     Indication: PAIN
     Route: 062
     Dates: start: 20110221, end: 20111023
  8. DUROTEP MT [Suspect]
     Indication: PAIN
     Route: 062
     Dates: start: 20101206, end: 20110220
  9. DUROTEP MT [Suspect]
     Indication: PAIN
     Route: 062
     Dates: start: 20101105, end: 20101205
  10. DUROTEP MT [Suspect]
     Indication: PAIN
     Route: 062
     Dates: start: 20101022, end: 20101104
  11. DUROTEP MT [Suspect]
     Indication: PAIN
     Dosage: HALF PATCH OF 12.5 UG/HR PATCH APPLIED
     Route: 062
     Dates: start: 20101004, end: 20101021
  12. SILECE [Concomitant]
     Indication: PAIN
     Route: 048
  13. LENDORMIN D [Concomitant]
     Indication: PAIN
     Route: 048
  14. PURSENNID [Concomitant]
     Indication: PAIN
     Route: 048
  15. LAXOBERON [Concomitant]
     Indication: PAIN
     Route: 048
  16. MAGNESIUM OXIDE [Concomitant]
     Indication: PAIN
     Route: 048
  17. FURSULTIAMINE [Concomitant]
     Indication: PAIN
     Route: 048
  18. TAKA-DIASTASE [Concomitant]
     Indication: PAIN
     Route: 048
  19. PANTETHINE [Concomitant]
     Indication: PAIN
     Route: 048
     Dates: end: 20110512
  20. REFLEX (MIRTAZAPINE) [Concomitant]
     Indication: PAIN
     Route: 048
     Dates: start: 20110408, end: 20110505
  21. REFLEX (MIRTAZAPINE) [Concomitant]
     Indication: PAIN
     Route: 048
     Dates: end: 20110407
  22. HERBESSER R [Concomitant]
     Indication: PAIN
     Route: 048
  23. CONIEL [Concomitant]
     Indication: PAIN
     Route: 048
  24. CATAPRES [Concomitant]
     Indication: PAIN
     Route: 048
  25. LUPRAC [Concomitant]
     Indication: PAIN
     Route: 048
  26. MILLISROL [Concomitant]
     Indication: PAIN
     Route: 062
  27. VASOLAN [Concomitant]
     Indication: PAIN
     Route: 048
  28. DIART [Concomitant]
     Indication: PAIN
     Route: 048
  29. WARFARIN [Concomitant]
     Indication: PAIN
     Route: 048
     Dates: end: 20110614
  30. WARFARIN [Concomitant]
     Indication: PAIN
     Route: 048
     Dates: start: 20110615
  31. UNIPHYL [Concomitant]
     Indication: PAIN
     Route: 048
  32. SINGULAIR [Concomitant]
     Indication: PAIN
     Route: 048
  33. MUCODYNE [Concomitant]
     Indication: PAIN
     Route: 048
  34. OMEPRAL [Concomitant]
     Indication: PAIN
     Route: 048
  35. INTAL [Concomitant]
     Indication: PAIN
     Route: 055
  36. GASMOTIN [Concomitant]
     Indication: PAIN
     Route: 048
  37. ALVESCO [Concomitant]
     Indication: PAIN
     Route: 055
  38. HACHIAZULE [Concomitant]
     Indication: PAIN
     Route: 049
     Dates: end: 20101119
  39. VENETLIN [Concomitant]
     Indication: PAIN
     Route: 055
  40. ATARAX-P [Concomitant]
     Indication: PAIN
     Route: 048
     Dates: start: 20110224, end: 20110519
  41. XYLOCAINE [Concomitant]
     Indication: PAIN
     Route: 065
  42. XYLOCAINE [Concomitant]
     Indication: PAIN
     Route: 065
  43. NEUROTROPIN [Concomitant]
     Route: 065
  44. ISOTONIC SODIUM CHLORIDE [Concomitant]
     Indication: PAIN
     Route: 065
  45. ENSURE [Concomitant]
     Indication: PAIN
     Route: 048
     Dates: start: 20110617, end: 20110623
  46. CALONAL [Concomitant]
     Indication: PAIN
     Route: 048
     Dates: start: 20110114, end: 20110114
  47. SELARA (EPLERENONE) [Concomitant]
     Indication: PAIN
     Route: 048
     Dates: start: 20100928, end: 20110210
  48. TOFRANIL MITE [Concomitant]
     Indication: PAIN
     Route: 048
     Dates: start: 20110422, end: 20110505
  49. TOFRANIL MITE [Concomitant]
     Indication: PAIN
     Route: 048
     Dates: start: 20110415, end: 20110421
  50. TOFRANIL MITE [Concomitant]
     Indication: PAIN
     Route: 048
     Dates: start: 20110408, end: 20110414
  51. TOFRANIL MITE [Concomitant]
     Indication: PAIN
     Route: 048
     Dates: start: 20110506, end: 20110512
  52. TOFRANIL MITE [Concomitant]
     Indication: PAIN
     Route: 048
     Dates: start: 20110513, end: 20110602
  53. KEFRAL [Concomitant]
     Indication: PAIN
     Route: 048
     Dates: start: 20110214, end: 20110416
  54. PREDONINE [Concomitant]
     Indication: PAIN
     Route: 048
     Dates: start: 20110812, end: 20110818
  55. RESLIN [Concomitant]
     Indication: PAIN
     Route: 048
     Dates: start: 20110408, end: 20110505
  56. MYOCOR [Concomitant]
     Indication: PAIN
     Route: 060
     Dates: start: 20110803, end: 20110803
  57. LIVOSTIN OPHTHALMIC DROPS [Concomitant]
     Indication: PAIN
     Route: 047
     Dates: start: 20110401, end: 20110415
  58. SODIUM FERROUS CITRATE [Concomitant]
     Indication: PAIN
     Route: 048
     Dates: end: 20110217
  59. XYZAL [Concomitant]
     Route: 048
     Dates: start: 20110318, end: 20110331
  60. NASONEX [Concomitant]
     Indication: PAIN
     Route: 045
     Dates: start: 20110401, end: 20110422
  61. POTASSIUM CHLORIDE [Concomitant]
     Indication: PAIN
     Route: 065
  62. SAXIZON [Concomitant]
     Indication: PAIN
     Route: 065
     Dates: start: 20110812, end: 20110812
  63. SAXIZON [Concomitant]
     Indication: PAIN
     Route: 065
     Dates: start: 20110822, end: 20110822
  64. SOLDEM 3A [Concomitant]
     Indication: PAIN
     Route: 041

REACTIONS (3)
  - Oedema [Unknown]
  - Periodontitis [Recovered/Resolved]
  - Wrong technique in drug usage process [Recovered/Resolved]
